FAERS Safety Report 6369376-2 (Version None)
Quarter: 2009Q3

REPORT INFORMATION
  Report Type: 
  Country: None (occurrence: None)
  Receive Date: 20090917
  Receipt Date: 20090902
  Transmission Date: 20100115
  Serious: Yes (Hospitalization)
  Sender: FDA-Public Use
  Company Number: 2009BM000196

PATIENT
  Age: 20 Year
  Sex: Female
  Weight: 40.28 kg

DRUGS (1)
  1. KUVAN [Suspect]
     Indication: PHENYLKETONURIA
     Dosage: 9 TAB; QD; PO
     Route: 048
     Dates: start: 20090527

REACTIONS (11)
  - ABORTION SPONTANEOUS [None]
  - CHORIOAMNIONITIS [None]
  - INADEQUATE DIET [None]
  - INAPPROPRIATE SCHEDULE OF DRUG ADMINISTRATION [None]
  - INCORRECT DOSE ADMINISTERED [None]
  - INTRA-UTERINE DEATH [None]
  - OLIGOHYDRAMNIOS [None]
  - PREGNANCY [None]
  - PREMATURE RUPTURE OF MEMBRANES [None]
  - THROMBOSIS [None]
  - VAGINAL HAEMORRHAGE [None]
